FAERS Safety Report 19082685 (Version 2)
Quarter: 2021Q2

REPORT INFORMATION
  Report Type: Spontaneous
  Country: GB (occurrence: GB)
  Receive Date: 20210401
  Receipt Date: 20210610
  Transmission Date: 20210717
  Serious: Yes (Hospitalization)
  Sender: FDA-Public Use
  Company Number: GB-JNJFOC-20210351939

PATIENT
  Age: 23 Year
  Sex: Female

DRUGS (1)
  1. PARACETAMOL [Suspect]
     Active Substance: ACETAMINOPHEN
     Indication: PRODUCT USED FOR UNKNOWN INDICATION
     Route: 065

REACTIONS (8)
  - Depressed mood [Unknown]
  - Confusional state [Unknown]
  - Status epilepticus [Unknown]
  - Headache [Unknown]
  - Alanine aminotransferase increased [Unknown]
  - Overdose [Unknown]
  - Vomiting [Unknown]
  - Social avoidant behaviour [Unknown]
